FAERS Safety Report 8134273-9 (Version None)
Quarter: 2012Q1

REPORT INFORMATION
  Report Type: 
  Country: None (occurrence: None)
  Receive Date: 20120209
  Receipt Date: 20120131
  Transmission Date: 20120608
  Serious: Yes (Hospitalization, Other)
  Sender: FDA-Public Use
  Company Number: 2012MA001381

PATIENT
  Sex: Male

DRUGS (14)
  1. HYDROCHLOROTHIAZIDE [Concomitant]
  2. BIDIL [Concomitant]
  3. TOPROL-XL [Concomitant]
  4. METFORMIN HCL [Concomitant]
  5. ASMANEX TWISTHALER [Concomitant]
  6. THEOPHYLLINE [Concomitant]
  7. GLYBURIDE [Concomitant]
  8. DIGOXIN [Suspect]
     Indication: PRODUCT USED FOR UNKNOWN INDICATION
     Dosage: 0.125 MG;QD;PO
     Route: 048
     Dates: start: 20060301, end: 20091228
  9. DIOVAN [Concomitant]
  10. SPIRIVA [Concomitant]
  11. OMEPRAZOLE [Concomitant]
  12. TERAZOSIN HCL [Concomitant]
  13. FLUVASTATIN [Concomitant]
  14. ASPIRIN [Concomitant]

REACTIONS (13)
  - ECONOMIC PROBLEM [None]
  - CONDITION AGGRAVATED [None]
  - VENTRICULAR TACHYCARDIA [None]
  - SPUTUM DISCOLOURED [None]
  - CHRONIC OBSTRUCTIVE PULMONARY DISEASE [None]
  - CARDIAC DISORDER [None]
  - PAIN [None]
  - CARDIAC FAILURE CONGESTIVE [None]
  - CHEST PAIN [None]
  - PALPITATIONS [None]
  - ANXIETY [None]
  - LOSS OF CONSCIOUSNESS [None]
  - CARDIOMYOPATHY [None]
